FAERS Safety Report 4536235-7 (Version None)
Quarter: 2004Q4

REPORT INFORMATION
  Report Type: 
  Country: None (occurrence: None)
  Receive Date: 20041223
  Receipt Date: 20040505
  Transmission Date: 20050328
  Serious: No
  Sender: FDA-Public Use
  Company Number: US-GLAXOSMITHKLINE-A0509663A

PATIENT
  Age: 79 Year
  Sex: Female

DRUGS (7)
  1. FLONASE [Suspect]
     Dosage: 2SPR VARIABLE DOSE
     Route: 045
  2. ZYRTEC [Concomitant]
  3. TRIAMTERENE AND HYDROCHLOROTHIAZIDE [Concomitant]
  4. METOPROLOL [Concomitant]
  5. DAYPRO [Concomitant]
  6. LIPITOR [Concomitant]
  7. DETROL [Concomitant]

REACTIONS (1)
  - EPISTAXIS [None]
